FAERS Safety Report 5947637-6 (Version None)
Quarter: 2008Q4

REPORT INFORMATION
  Report Type: 
  Country: None (occurrence: None)
  Receive Date: 20081107
  Receipt Date: 20081029
  Transmission Date: 20090506
  Serious: Yes (Other)
  Sender: FDA-Public Use
  Company Number: TRP_05882_2008

PATIENT
  Sex: Male
  Weight: 77.1115 kg

DRUGS (7)
  1. INFERGEN [Suspect]
     Indication: HEPATITIS C
     Dosage: (15 ?G QD SUBCUTANEOUS), (15 ?G 3X/WEEK SUBCUTANEOUS)
     Route: 058
     Dates: start: 20080812, end: 20080801
  2. INFERGEN [Suspect]
     Indication: HEPATITIS C
     Dosage: (15 ?G QD SUBCUTANEOUS), (15 ?G 3X/WEEK SUBCUTANEOUS)
     Route: 058
     Dates: start: 20080828, end: 20080925
  3. RIBAVIRIN [Suspect]
     Indication: HEPATITIS C
     Dosage: (400 MG BID   ORAL), (400 MG QD ORAL)
     Route: 048
     Dates: start: 20080812, end: 20080101
  4. RIBAVIRIN [Suspect]
     Indication: HEPATITIS C
     Dosage: (400 MG BID   ORAL), (400 MG QD ORAL)
     Route: 048
     Dates: start: 20080101, end: 20080925
  5. AMBIEN [Concomitant]
  6. ASACOL [Concomitant]
  7. ARANESP [Concomitant]

REACTIONS (9)
  - ASTHENIA [None]
  - COUGH [None]
  - DECREASED APPETITE [None]
  - DIZZINESS [None]
  - DYSPNOEA [None]
  - FATIGUE [None]
  - MEMORY IMPAIRMENT [None]
  - PALLOR [None]
  - WEIGHT DECREASED [None]
